FAERS Safety Report 7248166-2 (Version None)
Quarter: 2011Q1

REPORT INFORMATION
  Report Type: 
  Country: None (occurrence: None)
  Receive Date: 20110127
  Receipt Date: 20100928
  Transmission Date: 20110831
  Serious: Yes (Hospitalization, Other)
  Sender: FDA-Public Use
  Company Number: US-BAYER-201033834NA

PATIENT
  Sex: Female
  Weight: 124.26 kg

DRUGS (28)
  1. XANAX [Concomitant]
  2. AMOXICILLIN [Concomitant]
     Dosage: 875 MG, UNK
  3. YAZ [Suspect]
     Indication: PREMENSTRUAL SYNDROME
     Dosage: UNK
     Route: 048
     Dates: start: 20080101
  4. PHENAZOPYRIDINE HCL TAB [Concomitant]
     Dosage: 200 MG, UNK
  5. UNCODEABLE ^UNCLASSIFIABLE^ [Concomitant]
  6. ATUSS MS [Concomitant]
  7. NAPROSYN [Concomitant]
  8. DIFLUCAN [Concomitant]
     Dosage: 150 MG, UNK
  9. EFFEXOR XR [Concomitant]
     Dosage: 75 MG, UNK
  10. LEVAQUIN [Concomitant]
     Dosage: 500 MG, UNK
  11. PHENERGAN [Concomitant]
     Dosage: 25 MG, UNK
  12. DOXYCYCLINE [Concomitant]
     Dosage: 100 MG, UNK
  13. SULFAMETHOXAZOLE [Concomitant]
  14. MEPERGAN FORTIS [Concomitant]
  15. PHENTERMINE [Concomitant]
     Dosage: 30 MG, UNK
  16. YASMIN [Suspect]
     Indication: PRODUCT USED FOR UNKNOWN INDICATION
     Route: 048
  17. OCELLA [Suspect]
     Route: 048
  18. UNCODEABLE ^UNCLASSIFIABLE^ [Concomitant]
  19. UNCODEABLE ^UNCLASSIFIABLE^ [Concomitant]
  20. HYDROCODONE [Concomitant]
  21. METHYLPREDNISOLONE [Concomitant]
  22. LORATADINE [Concomitant]
     Dosage: 10 MG, UNK
  23. UNCODEABLE ^UNCLASSIFIABLE^ [Concomitant]
  24. MUCINEX [Concomitant]
  25. MINOCYCLINE HCL [Concomitant]
     Dosage: 50 MG, UNK
  26. ZITHROMAX [Concomitant]
  27. PERCOCET [Concomitant]
  28. UNCODEABLE ^UNCLASSIFIABLE^ [Concomitant]
     Dosage: 800 MG, UNK

REACTIONS (6)
  - PREGNANCY [None]
  - NEPHROLITHIASIS [None]
  - ABORTION SPONTANEOUS [None]
  - VOMITING [None]
  - ABDOMINAL PAIN LOWER [None]
  - NAUSEA [None]
